FAERS Safety Report 5393507-4 (Version None)
Quarter: 2007Q3

REPORT INFORMATION
  Report Type: 
  Country: None (occurrence: None)
  Receive Date: 20070723
  Receipt Date: 20060719
  Transmission Date: 20080115
  Serious: No
  Sender: FDA-Public Use
  Company Number: A0612806A

PATIENT
  Age: 61 Year
  Sex: Female

DRUGS (4)
  1. AVANDIA [Suspect]
     Route: 048
     Dates: start: 20050101
  2. METFORMIN HCL [Concomitant]
  3. LEVOTHYROXINE SODIUM [Concomitant]
  4. TOPROL-XL [Concomitant]

REACTIONS (1)
  - NAUSEA [None]
